FAERS Safety Report 14276637 (Version 1)
Quarter: 2017Q4

REPORT INFORMATION
  Report Type: Spontaneous
  Country: FR (occurrence: FR)
  Receive Date: 20171211
  Receipt Date: 20171211
  Transmission Date: 20180321
  Serious: Yes (Hospitalization)
  Sender: FDA-Public Use
  Company Number: FR-OTSUKA-2016_030013

PATIENT
  Age: 67 Year
  Sex: Male

DRUGS (8)
  1. LEPTICUR [Concomitant]
     Active Substance: TROPATEPINE HYDROCHLORIDE
     Indication: PRODUCT USED FOR UNKNOWN INDICATION
     Dosage: UNK
     Route: 065
  2. ABILIFY [Suspect]
     Active Substance: ARIPIPRAZOLE
     Indication: SCHIZOPHRENIA
     Dosage: 10 MG, UNK
     Route: 048
  3. ALPRAZOLAM. [Concomitant]
     Active Substance: ALPRAZOLAM
     Indication: PRODUCT USED FOR UNKNOWN INDICATION
     Dosage: UNK
     Route: 065
  4. TEMERIT DUO [Concomitant]
     Active Substance: HYDROCHLOROTHIAZIDE\NEBIVOLOL HYDROCHLORIDE
     Indication: PRODUCT USED FOR UNKNOWN INDICATION
     Dosage: UNK
     Route: 065
  5. ZOPICLONE [Suspect]
     Active Substance: ZOPICLONE
     Indication: SLEEP DISORDER
     Dosage: 7.5 MG, UNK
     Route: 048
     Dates: start: 20161126, end: 20161128
  6. ZOPICLONE [Suspect]
     Active Substance: ZOPICLONE
     Indication: SLEEP DISORDER
     Dosage: 7.5 MG, UNK
     Route: 048
     Dates: start: 20161126, end: 20161128
  7. ALPRAZOLAM. [Concomitant]
     Active Substance: ALPRAZOLAM
     Indication: PRODUCT USED FOR UNKNOWN INDICATION
     Route: 065
  8. ESIDREX [Concomitant]
     Active Substance: HYDROCHLOROTHIAZIDE
     Indication: PRODUCT USED FOR UNKNOWN INDICATION
     Dosage: UNK
     Route: 065

REACTIONS (5)
  - Somnolence [Recovered/Resolved]
  - Fall [Recovered/Resolved]
  - Disorientation [Unknown]
  - Confusional state [Recovered/Resolved]
  - Feeling abnormal [Recovered/Resolved]

NARRATIVE: CASE EVENT DATE: 20161128
